FAERS Safety Report 5700622-1 (Version None)
Quarter: 2008Q2

REPORT INFORMATION
  Report Type: 
  Country: None (occurrence: None)
  Receive Date: 20080409
  Receipt Date: 20080409
  Transmission Date: 20081010
  Serious: No
  Sender: FDA-Public Use
  Company Number: None

PATIENT
  Age: 80 Year
  Sex: Female
  Weight: 55.3388 kg

DRUGS (2)
  1. KEFZOL [Suspect]
     Dosage: 1GRAM
     Dates: start: 20080401
  2. ANTIBIOTIC [Concomitant]

REACTIONS (1)
  - RASH ERYTHEMATOUS [None]
